FAERS Safety Report 12634704 (Version 1)
Quarter: 2016Q3

REPORT INFORMATION
  Report Type: Spontaneous
  Country: US (occurrence: US)
  Receive Date: 20160809
  Receipt Date: 20160809
  Transmission Date: 20161109
  Serious: No
  Sender: FDA-Public Use
  Company Number: US-BAYER-2016-147621

PATIENT
  Age: 54 Year
  Sex: Female

DRUGS (1)
  1. CLIMARA PRO [Suspect]
     Active Substance: ESTRADIOL\LEVONORGESTREL
     Dosage: UNK UNK, OW
     Route: 062
     Dates: start: 201511

REACTIONS (4)
  - Product use issue [None]
  - Product adhesion issue [None]
  - Device use issue [None]
  - Product quality issue [None]
